FAERS Safety Report 4289278-5 (Version None)
Quarter: 2004Q1

REPORT INFORMATION
  Report Type: 
  Country: None (occurrence: None)
  Receive Date: 20040210
  Receipt Date: 20031229
  Transmission Date: 20041129
  Serious: Yes (Hospitalization, Other)
  Sender: FDA-Public Use
  Company Number: DK-BRISTOL-MYERS SQUIBB COMPANY-12466389

PATIENT
  Age: 56 Year
  Sex: Male
  Weight: 75 kg

DRUGS (2)
  1. CISPLATIN [Suspect]
     Indication: BLADDER CANCER
     Dosage: FIRST ADMINISTERED 06-AUG-2003
     Dates: start: 20031218, end: 20031218
  2. GEMCITABINE [Suspect]
     Indication: BLADDER CANCER
     Dosage: FIRST ADMINISTERED 05-AUG-2003
     Dates: start: 20031217, end: 20031217

REACTIONS (3)
  - PYREXIA [None]
  - SEPSIS [None]
  - THROMBOCYTOPENIA [None]
